FAERS Safety Report 7787708-5 (Version None)
Quarter: 2011Q3

REPORT INFORMATION
  Report Type: 
  Country: None (occurrence: None)
  Receive Date: 20110929
  Receipt Date: 20110921
  Transmission Date: 20111222
  Serious: Yes (Hospitalization)
  Sender: FDA-Public Use
  Company Number: CN-MERCK-1109CHN00195

PATIENT
  Age: 66 Year
  Sex: Male
  Weight: 73 kg

DRUGS (2)
  1. PROSCAR [Suspect]
     Indication: BENIGN NEOPLASM OF PROSTATE
     Route: 048
     Dates: start: 20110721, end: 20110918
  2. PROSCAR [Suspect]
     Route: 048
     Dates: start: 20110919, end: 20110920

REACTIONS (3)
  - URINARY RETENTION [None]
  - INTENTIONAL OVERDOSE [None]
  - DYSURIA [None]
